FAERS Safety Report 5906106-X (Version None)
Quarter: 2008Q4

REPORT INFORMATION
  Report Type: 
  Country: None (occurrence: None)
  Receive Date: 20081002
  Receipt Date: 20080924
  Transmission Date: 20090506
  Serious: Yes (Other)
  Sender: FDA-Public Use
  Company Number: PHHY2008JP19530

PATIENT

DRUGS (2)
  1. DIOVAN [Suspect]
     Indication: ESSENTIAL HYPERTENSION
  2. AMLODIPINE BESYLATE [Suspect]
     Indication: ESSENTIAL HYPERTENSION

REACTIONS (1)
  - CEREBRAL INFARCTION [None]
